FAERS Safety Report 7553044-5 (Version None)
Quarter: 2011Q2

REPORT INFORMATION
  Report Type: 
  Country: None (occurrence: None)
  Receive Date: 20110616
  Receipt Date: 20110606
  Transmission Date: 20111010
  Serious: Yes (Hospitalization)
  Sender: FDA-Public Use
  Company Number: FR-ABBOTT-10P-056-0677515-00

PATIENT
  Sex: Female
  Weight: 47.5 kg

DRUGS (11)
  1. TAMIK [Concomitant]
     Indication: HYPOTENSION
     Dates: start: 20101001, end: 20101007
  2. FORLAX [Concomitant]
     Indication: GENERAL SYMPTOM
     Dates: start: 20090211
  3. LEXOMIL [Concomitant]
     Indication: ANXIETY
     Dates: start: 20021013
  4. CALCIUM CARBONATE [Concomitant]
     Indication: PROPHYLAXIS
     Dates: start: 20040923
  5. NEXIUM [Concomitant]
     Indication: HAEMORRHAGE
  6. HEXAQUINE [Concomitant]
     Indication: MUSCLE SPASMS
     Dates: start: 20090211
  7. TOPAAL [Concomitant]
     Indication: GASTROOESOPHAGEAL REFLUX DISEASE
     Dates: start: 20081112
  8. NEXIUM [Concomitant]
     Indication: PROPHYLAXIS
     Dates: start: 20051123
  9. KALETRA [Suspect]
     Indication: HIV INFECTION
     Route: 048
     Dates: start: 20100430
  10. SPASFON [Concomitant]
     Indication: PAIN
     Dates: start: 20100215
  11. BONIVA [Concomitant]
     Indication: OSTEOPOROSIS
     Dates: start: 20091127

REACTIONS (3)
  - MYALGIA [None]
  - GENERAL PHYSICAL HEALTH DETERIORATION [None]
  - MUSCULAR WEAKNESS [None]
